FAERS Safety Report 11309663 (Version 1)
Quarter: 2015Q3

REPORT INFORMATION
  Report Type: Report from Study
  Country: US (occurrence: US)
  Receive Date: 20150724
  Receipt Date: 20150724
  Transmission Date: 20151125
  Serious: Yes (Hospitalization, Other)
  Sender: FDA-Public Use
  Company Number: US-BAYER-2015-009454

PATIENT
  Age: 61 Year
  Sex: Female

DRUGS (4)
  1. NEXAVAR [Suspect]
     Active Substance: SORAFENIB
     Indication: HEPATIC CANCER
     Dosage: 200 MG, QD
     Route: 048
     Dates: start: 20150209
  2. NEXAVAR [Suspect]
     Active Substance: SORAFENIB
     Indication: HEPATIC CANCER
     Dosage: 200 MG, QD
     Route: 048
     Dates: start: 20150616
  3. NEXAVAR [Suspect]
     Active Substance: SORAFENIB
     Indication: HEPATIC CANCER
     Dosage: 200 MG, QD
     Route: 048
  4. NEXAVAR [Suspect]
     Active Substance: SORAFENIB
     Indication: HEPATIC CANCER
     Dosage: 400 MG, BID
     Route: 048
     Dates: start: 20150106, end: 20150119

REACTIONS (25)
  - Erythema [None]
  - Hypertension [Not Recovered/Not Resolved]
  - Angina pectoris [None]
  - Blister [None]
  - Vomiting [None]
  - Hypoaesthesia [None]
  - Burning sensation [None]
  - Erythema [Recovering/Resolving]
  - Pain [None]
  - Headache [None]
  - Nausea [None]
  - Vomiting [None]
  - Peripheral swelling [None]
  - Skin induration [None]
  - Skin discolouration [None]
  - Headache [None]
  - Joint swelling [None]
  - Paraesthesia [None]
  - Dyspnoea [None]
  - Rash pruritic [Recovering/Resolving]
  - Pruritus generalised [None]
  - Dizziness [None]
  - Contusion [None]
  - Paraesthesia [None]
  - Fluid retention [None]

NARRATIVE: CASE EVENT DATE: 20150116
